FAERS Safety Report 8287038-1 (Version None)
Quarter: 2012Q2

REPORT INFORMATION
  Report Type: 
  Country: None (occurrence: None)
  Receive Date: 20120416
  Receipt Date: 20120412
  Transmission Date: 20120825
  Serious: Yes (Hospitalization, Other)
  Sender: FDA-Public Use
  Company Number: ZA-SANOFI-AVENTIS-2012SA025743

PATIENT
  Age: 14 Year
  Sex: Female

DRUGS (3)
  1. LANTUS [Suspect]
     Dosage: AT NIGHT DOSE:40 UNIT(S)
     Route: 058
     Dates: start: 20111201
  2. SOLOSTAR [Suspect]
     Indication: DEVICE THERAPY
     Dates: start: 20111201
  3. APIDRA [Suspect]
     Dosage: DOSE:14 UNIT(S)
     Route: 058
     Dates: start: 20111201

REACTIONS (3)
  - WRONG TECHNIQUE IN DRUG USAGE PROCESS [None]
  - HYPERGLYCAEMIA [None]
  - DIABETIC KETOACIDOSIS [None]
